FAERS Safety Report 9140974 (Version 1)
Quarter: 2013Q1

REPORT INFORMATION
  Report Type: Spontaneous
  Country: CN (occurrence: CN)
  Receive Date: 20130305
  Receipt Date: 20130305
  Transmission Date: 20140127
  Serious: Yes (Other)
  Sender: FDA-Public Use
  Company Number: PHHY2012CN127892

PATIENT
  Age: 91 Year
  Sex: Female

DRUGS (3)
  1. LOTENSIN [Suspect]
     Indication: HYPERTENSION
     Dosage: 5 MG, QD
     Route: 048
     Dates: start: 20100428, end: 20100512
  2. FENOFIBRATE [Suspect]
     Indication: HYPERTRIGLYCERIDAEMIA
     Dosage: UNK UKN, UNK
     Dates: start: 20100428, end: 20100512
  3. IBUPROFEN [Suspect]
     Dosage: UNK UKN, UNK
     Dates: start: 20100428, end: 20100512

REACTIONS (5)
  - Rhabdomyolysis [Recovering/Resolving]
  - Decreased appetite [Unknown]
  - Blood creatine phosphokinase increased [Unknown]
  - Myalgia [Unknown]
  - Headache [Unknown]
